FAERS Safety Report 5339951-2 (Version None)
Quarter: 2007Q2

REPORT INFORMATION
  Report Type: 
  Country: None (occurrence: None)
  Receive Date: 20070531
  Receipt Date: 20070510
  Transmission Date: 20071010
  Serious: No
  Sender: FDA-Public Use
  Company Number: US-JNJFOC-20070503094

PATIENT
  Age: 18 Year
  Sex: Male

DRUGS (1)
  1. INVEGA [Suspect]
     Indication: MENTAL DISORDER
     Route: 048

REACTIONS (3)
  - DYSKINESIA [None]
  - MUSCLE RIGIDITY [None]
  - PAIN [None]
